FAERS Safety Report 7973652-7 (Version None)
Quarter: 2011Q4

REPORT INFORMATION
  Report Type: 
  Country: None (occurrence: None)
  Receive Date: 20111213
  Receipt Date: 20111208
  Transmission Date: 20120403
  Serious: Yes (Death)
  Sender: FDA-Public Use
  Company Number: GB-ROCHE-1014716

PATIENT
  Sex: Female

DRUGS (10)
  1. FLUDROCORTISONE ACETATE [Concomitant]
  2. ACETAMINOPHEN [Concomitant]
  3. LEVOTHYROXINE SODIUM [Concomitant]
  4. BUMETANIDE [Concomitant]
  5. FERROUS SULFATE TAB [Concomitant]
  6. LUCENTIS [Suspect]
     Indication: AGE-RELATED MACULAR DEGENERATION
     Route: 050
     Dates: start: 20090416
  7. CALCICHEW D3 [Concomitant]
  8. IRBESARTAN [Concomitant]
  9. ALENDRONATE SODIUM [Concomitant]
  10. OMEPRAZOLE [Concomitant]

REACTIONS (1)
  - DEATH [None]
